FAERS Safety Report 14781410 (Version 1)
Quarter: 2018Q2

REPORT INFORMATION
  Report Type: Spontaneous
  Country: US (occurrence: US)
  Receive Date: 20180419
  Receipt Date: 20180419
  Transmission Date: 20180711
  Serious: No
  Sender: FDA-Public Use
  Company Number: US-NEUROCRINE BIOSCIENCES INC.-2018NBI00749

PATIENT
  Sex: Male

DRUGS (2)
  1. INGREZZA [Suspect]
     Active Substance: VALBENAZINE
     Indication: PRODUCT USED FOR UNKNOWN INDICATION
     Dosage: IN THE MORNING
     Route: 048
     Dates: start: 20180111, end: 20180117
  2. INGREZZA [Suspect]
     Active Substance: VALBENAZINE
     Dosage: IN THE MORNING
     Route: 048
     Dates: start: 20180118, end: 20180228

REACTIONS (4)
  - Somnolence [Recovered/Resolved]
  - Drooling [Unknown]
  - Speech disorder [Recovered/Resolved]
  - Mobility decreased [Unknown]

NARRATIVE: CASE EVENT DATE: 2018
